FAERS Safety Report 23296837 (Version 3)
Quarter: 2025Q3

REPORT INFORMATION
  Report Type: Spontaneous
  Country: EU (occurrence: EU)
  Receive Date: 20231214
  Receipt Date: 20250904
  Transmission Date: 20251020
  Serious: Yes (Hospitalization, Other)
  Sender: OTSUKA
  Company Number: EU-OTSUKA-2023_030131

PATIENT
  Age: 23 Year
  Sex: Female

DRUGS (6)
  1. ABILIFY MAINTENA [Suspect]
     Active Substance: ARIPIPRAZOLE
     Indication: Schizophrenia
     Route: 065
  2. ABILIFY MAINTENA [Suspect]
     Active Substance: ARIPIPRAZOLE
     Indication: Schizophrenia
     Route: 065
  3. ABILIFY [Suspect]
     Active Substance: ARIPIPRAZOLE
     Indication: Schizophrenia
     Dosage: 9.75 MG, TID (EACH IN THE MORNINGS, AT NOON AND IN THE EVENING FOR DAYS 1-3; FAST SATURATION)
     Route: 030
  4. ARIPIPRAZOLE [Suspect]
     Active Substance: ARIPIPRAZOLE
     Indication: Schizophrenia
     Dosage: 30 MG, QD (IN MORNING ON DAY 4-5) (STABILITY AND COMPATIBILITY TESTING)
     Route: 048
  5. ARIPIPRAZOLE [Suspect]
     Active Substance: ARIPIPRAZOLE
     Dosage: 20 MG, QD (IN MORNING ON DAY 6)
     Route: 048
  6. LORAZEPAM [Concomitant]
     Active Substance: LORAZEPAM
     Indication: Product used for unknown indication
     Route: 065

REACTIONS (2)
  - Psychotic symptom [Unknown]
  - Schizophrenia [Recovered/Resolved]
